FAERS Safety Report 5195939-6 (Version None)
Quarter: 2007Q1

REPORT INFORMATION
  Report Type: 
  Country: None (occurrence: None)
  Receive Date: 20070102
  Receipt Date: 20061215
  Transmission Date: 20070707
  Serious: Yes (Hospitalization)
  Sender: FDA-Public Use
  Company Number: US-ROCHE-458671

PATIENT
  Age: 17 Year
  Sex: Male
  Weight: 70.3 kg

DRUGS (4)
  1. ACCUTANE [Suspect]
     Indication: ACNE
     Route: 065
     Dates: start: 19901015, end: 19910313
  2. ACCUTANE [Suspect]
     Route: 065
     Dates: start: 19950915, end: 19960207
  3. ENTOCORT [Concomitant]
     Dosage: DRUG REPORTED AS ENTOCORT EC. TAKEN DAILY.
     Route: 048
  4. UNSPECIFIED DRUG [Concomitant]
     Dosage: DRUG NAME REPORTED AS VSL PROBIOTIC. TAKEN DAILY.
     Route: 048

REACTIONS (10)
  - CHEILITIS [None]
  - CLOSTRIDIAL INFECTION [None]
  - COLITIS [None]
  - COLITIS ULCERATIVE [None]
  - DEPRESSION [None]
  - DRY EYE [None]
  - DRY SKIN [None]
  - EPISTAXIS [None]
  - HEADACHE [None]
  - INFLAMMATORY BOWEL DISEASE [None]
